FAERS Safety Report 18985062 (Version 1)
Quarter: 2021Q1

REPORT INFORMATION
  Report Type: Spontaneous
  Country: GB (occurrence: GB)
  Receive Date: 20210308
  Receipt Date: 20210308
  Transmission Date: 20210420
  Serious: Yes (Other)
  Sender: FDA-Public Use
  Company Number: GB-AUROBINDO-AUR-APL-2021-009197

PATIENT
  Age: 50 Year
  Sex: Female

DRUGS (11)
  1. TAMOXIFEN [Suspect]
     Active Substance: TAMOXIFEN
     Indication: BREAST CANCER
     Dosage: 20 MILLIGRAM, ONCE A DAY
     Route: 048
     Dates: start: 20160420
  2. DOCETAXEL. [Suspect]
     Active Substance: DOCETAXEL
     Indication: BREAST CANCER
     Dosage: 130 MILLIGRAM 3 WEEK
     Route: 042
     Dates: start: 20150904, end: 20151016
  3. PERTUZUMAB. [Suspect]
     Active Substance: PERTUZUMAB
     Indication: BREAST CANCER
     Dosage: 840 MILLIGRAM 3 WEEK 840 MG LOADING DOSE ONCE AND MAINTENANCE DOSE OF 420 MG IN 3 WEEKS
     Route: 042
     Dates: start: 20150904, end: 20150904
  4. PERTUZUMAB. [Suspect]
     Active Substance: PERTUZUMAB
     Dosage: 840 MILLIGRAM  LOADING DOSE ONCE AND MAINTENANCE DOSE OF 420 MG IN 3 WEEKS
     Route: 042
     Dates: start: 20161117, end: 20161117
  5. TRASTUZUMAB. [Suspect]
     Active Substance: TRASTUZUMAB
     Dosage: 6 MILLIGRAM/KILOGRAM 3 WEEK LOADING DOSE OF 8 MG/KG AND THEN 6 MG/KG REPEATED AT 3 WEEKLY INTERVALSD
     Route: 042
     Dates: start: 20150925, end: 20160916
  6. PERTUZUMAB. [Suspect]
     Active Substance: PERTUZUMAB
     Dosage: 840 MILLIGRAM 3 WEEK LOADING DOSE ONCE AND MAINTENANCE DOSE OF 420 MG IN 3 WEEKS
     Route: 042
     Dates: start: 20161208
  7. DOCETAXEL. [Suspect]
     Active Substance: DOCETAXEL
     Dosage: 100 MILLIGRAM 3 WEEK DOSE MODIFIED DUE TO AE FROM 130 TO 100PLANNED CYCLES COMPLETED HENCE DISCONTIN
     Route: 042
     Dates: start: 20151113, end: 20160104
  8. PERTUZUMAB. [Suspect]
     Active Substance: PERTUZUMAB
     Dosage: 420 MILLIGRAM 3 WEEK 840 MG LOADING DOSE ONCE AND MAINTENANCE DOSE OF 420 MG IN 3 WEEKSDRUG DISCONTI
     Route: 042
     Dates: start: 20150925, end: 20160916
  9. TRASTUZUMAB. [Suspect]
     Active Substance: TRASTUZUMAB
     Indication: BREAST CANCER
     Dosage: 8 MILLIGRAM/KILOGRAM LOADING DOSE OF 8 MG/KG AND THEN 6 MG/KG REPEATED AT 3 WEEKLY INTERVALS
     Route: 042
     Dates: start: 20150904, end: 20150904
  10. TRASTUZUMAB. [Suspect]
     Active Substance: TRASTUZUMAB
     Dosage: 8 MILLIGRAM/KILOGRAM LOADING 8 MG/KG AND THEN MAINTANANCE DOSE 6 MG/KG IN 3 WEEKS
     Route: 042
     Dates: start: 20161117, end: 20161117
  11. TRASTUZUMAB. [Suspect]
     Active Substance: TRASTUZUMAB
     Dosage: 6 MILLIGRAM/KILOGRAM 3 WEEK LOADING 8 MG/KG AND THEN MAINTANANCE DOSE 6 MG/KG IN 3 WEEKS
     Route: 042
     Dates: start: 20161208

REACTIONS (1)
  - Pelvic infection [Recovered/Resolved]

NARRATIVE: CASE EVENT DATE: 201612
